FAERS Safety Report 8068010-3 (Version None)
Quarter: 2012Q1

REPORT INFORMATION
  Report Type: 
  Country: None (occurrence: None)
  Receive Date: 20120124
  Receipt Date: 20110915
  Transmission Date: 20120608
  Serious: No
  Sender: FDA-Public Use
  Company Number: US-AMGEN-USASP2011047607

PATIENT
  Age: 74 Year
  Sex: Female

DRUGS (4)
  1. CALCIUM WITH VITAMIN D             /00944201/ [Concomitant]
  2. PROLIA [Suspect]
     Indication: OSTEOPOROSIS POSTMENOPAUSAL
     Dosage: 60 MG, Q6MO
     Dates: start: 20110812
  3. CENTRUM SILVER                     /01292501/ [Concomitant]
  4. SYNTHROID [Concomitant]

REACTIONS (8)
  - SPINAL DISORDER [None]
  - RASH PRURITIC [None]
  - FATIGUE [None]
  - RASH ERYTHEMATOUS [None]
  - RASH GENERALISED [None]
  - BONE PAIN [None]
  - PAPULE [None]
  - FEELING ABNORMAL [None]
